FAERS Safety Report 11436545 (Version 1)
Quarter: 2015Q3

REPORT INFORMATION
  Report Type: Spontaneous
  Country: US (occurrence: US)
  Receive Date: 20150821
  Receipt Date: 20150821
  Transmission Date: 20151125
  Serious: No
  Sender: FDA-Public Use
  Company Number: US-ELI_LILLY_AND_COMPANY-US201403010429

PATIENT
  Age: 60 Year
  Sex: Female

DRUGS (7)
  1. COREG [Concomitant]
     Active Substance: CARVEDILOL
     Dosage: UNK, UNKNOWN
     Route: 065
  2. CLARITIN [Concomitant]
     Active Substance: LORATADINE
     Dosage: UNK DF, UNKNOWN
     Route: 065
  3. LYRICA [Concomitant]
     Active Substance: PREGABALIN
     Dosage: UNK, UNKNOWN
     Route: 065
  4. ATACAND [Concomitant]
     Active Substance: CANDESARTAN CILEXETIL
     Dosage: UNK, UNKNOWN
     Route: 065
  5. CELEBREX [Concomitant]
     Active Substance: CELECOXIB
     Dosage: UNK, UNKNOWN
     Route: 065
  6. INSULIN HUMAN [Suspect]
     Active Substance: INSULIN HUMAN
     Indication: DIABETES MELLITUS
     Dosage: UNK U, UNKNOWN
     Route: 065
     Dates: start: 197103
  7. HUMULIN N [Suspect]
     Active Substance: INSULIN HUMAN
     Indication: DIABETES MELLITUS
     Dosage: UNK U, UNKNOWN
     Route: 065
     Dates: start: 197103

REACTIONS (2)
  - Feeling abnormal [Unknown]
  - Blood glucose decreased [Unknown]

NARRATIVE: CASE EVENT DATE: 201403
